FAERS Safety Report 7588902-9 (Version None)
Quarter: 2011Q3

REPORT INFORMATION
  Report Type: 
  Country: None (occurrence: None)
  Receive Date: 20110705
  Receipt Date: 20110623
  Transmission Date: 20111222
  Serious: Yes (Hospitalization)
  Sender: FDA-Public Use
  Company Number: US-JNJFOC-20110611673

PATIENT
  Sex: Female
  Weight: 47.63 kg

DRUGS (8)
  1. FENTANYL-100 [Suspect]
     Indication: ARTHRITIS
     Route: 062
  2. FENTANYL-100 [Suspect]
     Route: 062
  3. FENTANYL CITRATE [Suspect]
     Indication: ARTHRITIS
     Route: 062
  4. TRAMADOL HCL [Concomitant]
     Indication: PAIN
     Route: 048
  5. DURAGESIC-100 [Suspect]
     Indication: ARTHRITIS
     Route: 062
  6. LORTAB [Concomitant]
     Indication: PAIN
     Route: 048
  7. FENTANYL-100 [Suspect]
     Indication: ARTHRITIS
     Route: 062
  8. UNKNOWN MEDICATION [Concomitant]
     Indication: PAIN
     Route: 060

REACTIONS (9)
  - APPLICATION SITE RASH [None]
  - THERAPEUTIC RESPONSE DECREASED [None]
  - ARTHRITIS [None]
  - APPLICATION SITE EROSION [None]
  - APPLICATION SITE BLEEDING [None]
  - WITHDRAWAL SYNDROME [None]
  - SPONDYLITIS [None]
  - HEADACHE [None]
  - TREMOR [None]
